FAERS Safety Report 8498348-7 (Version None)
Quarter: 2012Q3

REPORT INFORMATION
  Report Type: 
  Country: None (occurrence: None)
  Receive Date: 20120709
  Receipt Date: 20120621
  Transmission Date: 20120928
  Serious: No
  Sender: FDA-Public Use
  Company Number: US-AMGEN-USASP2012038645

PATIENT
  Sex: Female

DRUGS (2)
  1. ENBREL [Suspect]
     Indication: RHEUMATOID ARTHRITIS
     Dosage: 50 MG, QWK
     Dates: start: 20091211, end: 20111201
  2. ENBREL [Suspect]
     Indication: PSORIASIS

REACTIONS (2)
  - RHEUMATOID ARTHRITIS [None]
  - PSORIASIS [None]
